FAERS Safety Report 8564011-7 (Version None)
Quarter: 2012Q3

REPORT INFORMATION
  Report Type: 
  Country: None (occurrence: None)
  Receive Date: 20120803
  Receipt Date: 20120801
  Transmission Date: 20120928
  Serious: Yes (Death, Other)
  Sender: FDA-Public Use
  Company Number: PHEH2008US00490

PATIENT
  Sex: Male

DRUGS (11)
  1. LANOXIN [Concomitant]
  2. LEVAQUIN [Concomitant]
  3. CLINDAMYCIN [Concomitant]
     Dosage: 150 MG, QID
  4. ROXANOL [Concomitant]
     Dosage: 5 MG, Q4H
     Route: 048
  5. ZOMETA [Suspect]
     Dosage: 4 MG, QMO
     Route: 042
  6. METHADONE HCL [Concomitant]
     Dosage: UNK UKN, BID
  7. ASPIRIN [Concomitant]
  8. PERIOSTAT [Concomitant]
     Dosage: 1 DF, BID
     Route: 048
  9. PERIDEX [Concomitant]
  10. RISPERDAL [Concomitant]
     Dosage: 1 MG, QHS
     Route: 048
  11. DIGOXIN [Concomitant]
     Dosage: 0.125 MG, QD
     Route: 048

REACTIONS (93)
  - DEATH [None]
  - UPPER RESPIRATORY TRACT INFECTION [None]
  - NEOPLASM MALIGNANT [None]
  - URINARY TRACT INFECTION [None]
  - BLADDER OUTLET OBSTRUCTION [None]
  - METASTASES TO SPINE [None]
  - CORONARY ARTERY DISEASE [None]
  - INTERVERTEBRAL DISC DEGENERATION [None]
  - LUMBAR RADICULOPATHY [None]
  - POLLAKIURIA [None]
  - ARRHYTHMIA [None]
  - CEREBRAL HAEMORRHAGE [None]
  - CARDIAC FAILURE CONGESTIVE [None]
  - ANHEDONIA [None]
  - METASTASES TO BONE [None]
  - ACUTE PRERENAL FAILURE [None]
  - LUMBAR SPINAL STENOSIS [None]
  - DEPRESSION [None]
  - DIARRHOEA [None]
  - NOCTURIA [None]
  - PARKINSONISM [None]
  - CONVULSION [None]
  - MALNUTRITION [None]
  - AORTIC STENOSIS [None]
  - URINARY RETENTION [None]
  - ENCEPHALOPATHY [None]
  - DYSPNOEA EXERTIONAL [None]
  - PAIN [None]
  - HYPOTENSION [None]
  - CALCULUS URETERIC [None]
  - INTERVERTEBRAL DISC SPACE NARROWING [None]
  - SPINAL OSTEOARTHRITIS [None]
  - SUBDURAL HAEMATOMA [None]
  - DECREASED APPETITE [None]
  - MYALGIA [None]
  - ARTHRALGIA [None]
  - PLEURAL EFFUSION [None]
  - ATELECTASIS [None]
  - ONYCHOMYCOSIS [None]
  - FOOT DEFORMITY [None]
  - SYNCOPE [None]
  - OSTEOMYELITIS [None]
  - PROSTATOMEGALY [None]
  - METASTASES TO PELVIS [None]
  - DIABETES MELLITUS [None]
  - VERTEBRAL FORAMINAL STENOSIS [None]
  - HEPATIC CYST [None]
  - CEREBELLAR ATROPHY [None]
  - GAIT DISTURBANCE [None]
  - HYPOALBUMINAEMIA [None]
  - HYPERTENSION [None]
  - LEFT VENTRICULAR HYPERTROPHY [None]
  - PROSTATE CANCER METASTATIC [None]
  - AORTIC ANEURYSM [None]
  - HIATUS HERNIA [None]
  - DEMENTIA [None]
  - AMNESIA [None]
  - ANXIETY [None]
  - SWELLING [None]
  - GINGIVAL BLEEDING [None]
  - CONFUSIONAL STATE [None]
  - VERTIGO [None]
  - BRAIN INJURY [None]
  - INGROWING NAIL [None]
  - PALPITATIONS [None]
  - OSTEONECROSIS OF JAW [None]
  - PAIN IN JAW [None]
  - MYOCARDIAL ISCHAEMIA [None]
  - DEAFNESS BILATERAL [None]
  - SPINAL COMPRESSION FRACTURE [None]
  - GOUT [None]
  - DIZZINESS [None]
  - BACK PAIN [None]
  - HYPONATRAEMIA [None]
  - ANAEMIA [None]
  - SICK SINUS SYNDROME [None]
  - CARDIOMEGALY [None]
  - OEDEMA PERIPHERAL [None]
  - THROAT CANCER [None]
  - CONSTIPATION [None]
  - ATRIAL FIBRILLATION [None]
  - SINUS ARRHYTHMIA [None]
  - INJURY [None]
  - EXPOSED BONE IN JAW [None]
  - NEPHROLITHIASIS [None]
  - AORTIC ARTERIOSCLEROSIS [None]
  - OSTEOARTHRITIS [None]
  - NEUROPATHY PERIPHERAL [None]
  - MITRAL VALVE PROLAPSE [None]
  - HYPERLIPIDAEMIA [None]
  - CAROTID ARTERY DISEASE [None]
  - WEIGHT DECREASED [None]
  - PNEUMOTHORAX [None]
